FAERS Safety Report 15011378 (Version 1)
Quarter: 2018Q2

REPORT INFORMATION
  Report Type: Spontaneous
  Country: US (occurrence: US)
  Receive Date: 20180529
  Receipt Date: 20180529
  Transmission Date: 20180711
  Serious: Yes (Hospitalization, Disabling)
  Sender: FDA-Public Use
  Company Number: None

PATIENT
  Age: 68 Year
  Sex: Female
  Weight: 105.75 kg

DRUGS (12)
  1. MONTELUKAST SOD [Suspect]
     Active Substance: MONTELUKAST SODIUM
     Indication: MALIGNANT MAST CELL NEOPLASM
     Dosage: ?          QUANTITY:1 TABLET(S);?
     Route: 048
     Dates: start: 20180404, end: 20180406
  2. TRAZODONE [Concomitant]
     Active Substance: TRAZODONE HYDROCHLORIDE
  3. VITAMIN C [Concomitant]
     Active Substance: ASCORBIC ACID
  4. VALGANCICLOVIR. [Concomitant]
     Active Substance: VALGANCICLOVIR
  5. LORATADINE. [Concomitant]
     Active Substance: LORATADINE
  6. CELEBREX [Concomitant]
     Active Substance: CELECOXIB
  7. THYROID [Concomitant]
     Active Substance: LEVOTHYROXINE\LIOTHYRONINE
  8. UBIQUINOL [Concomitant]
     Active Substance: UBIQUINOL
  9. QUERCETIN [Concomitant]
     Active Substance: QUERCETIN
  10. DEXTROAMPHETAMINE. [Concomitant]
     Active Substance: DEXTROAMPHETAMINE
  11. PAROXETINE. [Concomitant]
     Active Substance: PAROXETINE
  12. RANITIDINE. [Concomitant]
     Active Substance: RANITIDINE

REACTIONS (10)
  - Anger [None]
  - Muscular weakness [None]
  - Asthenia [None]
  - Personality change [None]
  - Suicidal ideation [None]
  - Impatience [None]
  - Memory impairment [None]
  - Crying [None]
  - Abnormal behaviour [None]
  - Back disorder [None]

NARRATIVE: CASE EVENT DATE: 20180427
